FAERS Safety Report 4424499-X (Version None)
Quarter: 2004Q3

REPORT INFORMATION
  Report Type: 
  Country: None (occurrence: None)
  Receive Date: 20040812
  Receipt Date: 20040810
  Transmission Date: 20050211
  Serious: Yes (Hospitalization)
  Sender: FDA-Public Use
  Company Number: 2004015094

PATIENT
  Age: 47 Year
  Sex: Female

DRUGS (3)
  1. ZIAGEN [Suspect]
     Dosage: 15TAB PER DAY
     Route: 048
     Dates: start: 20040809, end: 20040809
  2. VIDEX [Suspect]
     Dosage: 20TAB PER DAY
     Route: 048
     Dates: start: 20040809, end: 20040809
  3. ZERIT [Suspect]
     Dosage: 20TAB PER DAY
     Route: 048
     Dates: start: 20040809, end: 20040809

REACTIONS (3)
  - AGITATION [None]
  - INTENTIONAL OVERDOSE [None]
  - SUICIDE ATTEMPT [None]
